FAERS Safety Report 6146490-8 (Version None)
Quarter: 2009Q2

REPORT INFORMATION
  Report Type: 
  Country: None (occurrence: None)
  Receive Date: 20090407
  Receipt Date: 20090331
  Transmission Date: 20091009
  Serious: Yes (Other)
  Sender: FDA-Public Use
  Company Number: B0567734A

PATIENT
  Age: 64 Year
  Sex: Female

DRUGS (3)
  1. ZANTAC [Suspect]
     Indication: DRUG USE FOR UNKNOWN INDICATION
     Route: 065
     Dates: start: 20080301, end: 20080301
  2. UNKNOWN DRUG [Concomitant]
     Route: 065
  3. UNKNOWN DRUG [Concomitant]
     Route: 065

REACTIONS (1)
  - OCULOMUCOCUTANEOUS SYNDROME [None]
